FAERS Safety Report 4607371-1 (Version None)
Quarter: 2005Q1

REPORT INFORMATION
  Report Type: 
  Country: None (occurrence: None)
  Receive Date: 20050311
  Receipt Date: 20050311
  Transmission Date: 20050727
  Serious: Yes (Life-Threatening, Hospitalization)
  Sender: FDA-Public Use
  Company Number: None

PATIENT
  Age: 56 Year
  Sex: Male
  Weight: 98.4306 kg

DRUGS (2)
  1. RIBAVIRIN [Suspect]
     Indication: HEPATITIS C
     Dosage: 600 MG PO BID
     Route: 048
     Dates: start: 20041001, end: 20041101
  2. PEG-INTRON [Suspect]
     Indication: HEPATITIS C
     Dosage: 180MCG SQ Q WEEK
     Dates: start: 20041001, end: 20041101

REACTIONS (2)
  - ANAEMIA [None]
  - THROMBOCYTOPENIA [None]
